FAERS Safety Report 9536627 (Version 1)
Quarter: 2013Q3

REPORT INFORMATION
  Report Type: Spontaneous
  Country: US (occurrence: US)
  Receive Date: 20130919
  Receipt Date: 20130919
  Transmission Date: 20140515
  Serious: No
  Sender: FDA-Public Use
  Company Number: US-BAYER-2013-113091

PATIENT
  Age: 72 Year
  Sex: Female
  Weight: 88 kg

DRUGS (5)
  1. ALEVE LIQUID GELS [Suspect]
     Indication: ARTHRITIS
     Dosage: 1 DF, BID
     Route: 048
     Dates: start: 201308, end: 201309
  2. ALEVE TABLET [Suspect]
     Indication: ARTHRITIS
     Dosage: 2 DF, TID
     Route: 048
  3. LISINOPRIL [Concomitant]
  4. LOVASTATIN [Concomitant]
  5. BAYER ASPIRIN REGIMEN REGULAR 325 MG STRENGTH [Concomitant]
     Indication: ISCHAEMIC HEART DISEASE PROPHYLAXIS
     Dosage: 1 DF, QD
     Route: 048

REACTIONS (3)
  - Drug ineffective [None]
  - Extra dose administered [None]
  - Incorrect drug administration duration [None]
